FAERS Safety Report 14843706 (Version 3)
Quarter: 2018Q3

REPORT INFORMATION
  Report Type: Report from Study
  Country: US (occurrence: US)
  Receive Date: 20180503
  Receipt Date: 20180725
  Transmission Date: 20181010
  Serious: Yes (Hospitalization, Other)
  Sender: FDA-Public Use
  Company Number: US-BAYER-2018-035930

PATIENT
  Age: 82 Year
  Sex: Male

DRUGS (26)
  1. BAYER ASPIRIN [Suspect]
     Active Substance: ASPIRIN
  2. SINGULAIR [Concomitant]
     Active Substance: MONTELUKAST SODIUM
     Dosage: 10 MG, DAILY
     Route: 048
  3. PRILOSEC [Concomitant]
     Active Substance: OMEPRAZOLE MAGNESIUM
  4. PREDNISONE. [Concomitant]
     Active Substance: PREDNISONE
  5. PREDNISONE. [Concomitant]
     Active Substance: PREDNISONE
     Dosage: 40 MG,DAILY
  6. XANAX [Concomitant]
     Active Substance: ALPRAZOLAM
     Indication: ANXIETY
  7. XANAX [Concomitant]
     Active Substance: ALPRAZOLAM
     Indication: ANXIETY
     Dosage: 0.5 MG, TID (PRN)
     Route: 048
  8. BACTRIM [Concomitant]
     Active Substance: SULFAMETHOXAZOLE\TRIMETHOPRIM
  9. ACYCLOVIR [ACICLOVIR] [Concomitant]
     Active Substance: ACYCLOVIR
     Dosage: 400 MG, BID
     Route: 048
  10. ZYRTEC [Concomitant]
     Active Substance: CETIRIZINE HYDROCHLORIDE
  11. LOSARTAN. [Concomitant]
     Active Substance: LOSARTAN
     Dosage: 25 MG, QD (AT BEDTIME)
     Route: 048
  12. LIPITOR [Concomitant]
     Active Substance: ATORVASTATIN CALCIUM
     Dosage: 80 MG, QD (BEDTIME)
     Route: 048
  13. XOFIGO [Suspect]
     Active Substance: RADIUM RA-223 DICHLORIDE
     Indication: METASTASES TO BONE
     Dosage: UNK, ONCE
     Route: 042
     Dates: start: 20180117
  14. XOFIGO [Suspect]
     Active Substance: RADIUM RA-223 DICHLORIDE
     Indication: HORMONE-REFRACTORY PROSTATE CANCER
     Dosage: UNK, ONCE
     Route: 042
  15. ATENOLOL. [Concomitant]
     Active Substance: ATENOLOL
  16. FUROSEMIDE. [Concomitant]
     Active Substance: FUROSEMIDE
     Dosage: 40 MG, QD
     Route: 048
  17. XOFIGO [Suspect]
     Active Substance: RADIUM RA-223 DICHLORIDE
     Indication: HORMONE-REFRACTORY PROSTATE CANCER
     Dosage: UNK, ONCE
     Route: 042
     Dates: start: 2017, end: 2017
  18. DIFLUCAN [Concomitant]
     Active Substance: FLUCONAZOLE
  19. OMNICEF [Concomitant]
     Active Substance: CEFDINIR
     Dosage: 300 MG, BID (FOR FOUR DAYS)
  20. HYDROCODONE [Concomitant]
     Active Substance: HYDROCODONE
     Indication: PAIN
     Dosage: 7.5 MG, QID (PRN)
  21. ATORVASTATIN [Concomitant]
     Active Substance: ATORVASTATIN
  22. FLUCONAZOLE. [Concomitant]
     Active Substance: FLUCONAZOLE
     Dosage: 50 MG, QD
     Route: 048
  23. ZYRTEC [Concomitant]
     Active Substance: CETIRIZINE HYDROCHLORIDE
     Dosage: 10 MG, QD
     Route: 048
  24. ZESTRIL [Concomitant]
     Active Substance: LISINOPRIL
  25. METOPROLOL. [Concomitant]
     Active Substance: METOPROLOL
     Dosage: 25 MG, BID
     Route: 048
  26. TAXOTERE [Concomitant]
     Active Substance: DOCETAXEL

REACTIONS (13)
  - Pain in jaw [None]
  - Thrombocytopenia [None]
  - Deep vein thrombosis [Recovering/Resolving]
  - Aortic valve incompetence [None]
  - Mitral valve incompetence [None]
  - Chest pain [Recovering/Resolving]
  - Acute myocardial infarction [None]
  - Upper gastrointestinal haemorrhage [Recovered/Resolved]
  - Blood count abnormal [None]
  - Immunosuppression [None]
  - Muscular weakness [None]
  - Musculoskeletal pain [None]
  - Dyspnoea [None]

NARRATIVE: CASE EVENT DATE: 2018
